FAERS Safety Report 12109073 (Version 1)
Quarter: 2016Q1

REPORT INFORMATION
  Report Type: Spontaneous
  Country: US (occurrence: None)
  Receive Date: 20160223
  Receipt Date: 20160223
  Transmission Date: 20160526
  Serious: Yes (Hospitalization, Other)
  Sender: FDA-Public Use
  Company Number: None

PATIENT
  Age: 31 Year
  Sex: Female
  Weight: 56.7 kg

DRUGS (2)
  1. PRISTIQ EXTENDED RELEASE [Suspect]
     Active Substance: DESVENLAFAXINE SUCCINATE
     Indication: ANXIETY
     Dosage: PILLS
     Route: 048
     Dates: start: 20160201, end: 20160218
  2. PRISTIQ EXTENDED RELEASE [Suspect]
     Active Substance: DESVENLAFAXINE SUCCINATE
     Indication: DEPRESSION
     Dosage: PILLS
     Route: 048
     Dates: start: 20160201, end: 20160218

REACTIONS (14)
  - Irritability [None]
  - Affect lability [None]
  - Intentional overdose [None]
  - Therapy cessation [None]
  - Energy increased [None]
  - Somnambulism [None]
  - Suicide attempt [None]
  - Loss of consciousness [None]
  - Aggression [None]
  - Depressed mood [None]
  - Sensory disturbance [None]
  - Nightmare [None]
  - Suicidal ideation [None]
  - Merycism [None]

NARRATIVE: CASE EVENT DATE: 20160221
